FAERS Safety Report 11986270 (Version 2)
Quarter: 2016Q2

REPORT INFORMATION
  Report Type: Report from Study
  Country: BR (occurrence: BR)
  Receive Date: 20160202
  Receipt Date: 20160502
  Transmission Date: 20160815
  Serious: Yes (Hospitalization)
  Sender: FDA-Public Use
  Company Number: BR-BRISTOL-MYERS SQUIBB COMPANY-BMS-2015-084337

PATIENT
  Sex: Female

DRUGS (3)
  1. ABATACEPT [Suspect]
     Active Substance: ABATACEPT
     Indication: RHEUMATOID ARTHRITIS
     Dosage: 1 DF, QWK (4 VIALS MONTHLY)
     Route: 042
  2. ABATACEPT [Suspect]
     Active Substance: ABATACEPT
     Dosage: 1 DF, UNK
     Route: 042
     Dates: start: 20151117
  3. ABATACEPT [Suspect]
     Active Substance: ABATACEPT
     Dosage: 1 DF, UNK
     Route: 042
     Dates: start: 20160401

REACTIONS (6)
  - Swelling [Unknown]
  - Peripheral swelling [Recovering/Resolving]
  - Influenza [Unknown]
  - Chest pain [Unknown]
  - Arthropathy [Unknown]
  - Cough [Unknown]
